FAERS Safety Report 5555895-5 (Version None)
Quarter: 2007Q4

REPORT INFORMATION
  Report Type: 
  Country: None (occurrence: None)
  Receive Date: 20071213
  Receipt Date: 20071116
  Transmission Date: 20080405
  Serious: No
  Sender: FDA-Public Use
  Company Number: US-BOEHRINGER INGELHEIM PHARMACEUTICALS, INC.-2007-BP-23428BP

PATIENT
  Sex: Male
  Weight: 73 kg

DRUGS (3)
  1. FLOMAX [Suspect]
     Indication: BLADDER NECK OBSTRUCTION
     Dates: end: 20070920
  2. FLOMAX [Suspect]
     Indication: URINARY RETENTION
  3. PRILOSEC [Concomitant]
     Dates: start: 20000101

REACTIONS (1)
  - MACULAR DEGENERATION [None]
